FAERS Safety Report 5851536-8 (Version None)
Quarter: 2008Q3

REPORT INFORMATION
  Report Type: 
  Country: None (occurrence: None)
  Receive Date: 20080820
  Receipt Date: 20080813
  Transmission Date: 20090109
  Serious: Yes (Other)
  Sender: FDA-Public Use
  Company Number: AU-AMGEN-US291140

PATIENT
  Sex: Male
  Weight: 85 kg

DRUGS (3)
  1. ENBREL [Suspect]
     Indication: RHEUMATOID ARTHRITIS
     Route: 058
     Dates: start: 20070401, end: 20071001
  2. PREDNISOLONE [Concomitant]
     Dosage: ^5MG DAILY^
     Route: 048
  3. METHOTREXATE SODIUM [Concomitant]
     Route: 048

REACTIONS (4)
  - ANTINUCLEAR ANTIBODY INCREASED [None]
  - GLOMERULONEPHRITIS [None]
  - PROTEINURIA [None]
  - RENAL IMPAIRMENT [None]
